FAERS Safety Report 14412612 (Version 1)
Quarter: 2018Q1

REPORT INFORMATION
  Report Type: Spontaneous
  Country: US (occurrence: US)
  Receive Date: 20180119
  Receipt Date: 20180119
  Transmission Date: 20180509
  Serious: Yes (Other)
  Sender: FDA-Public Use
  Company Number: US-BAYER-2018-013004

PATIENT
  Sex: Female

DRUGS (1)
  1. MIRENA [Suspect]
     Active Substance: LEVONORGESTREL
     Dosage: 20 MCG/24HR, CONT
     Route: 015
     Dates: start: 2009, end: 2015

REACTIONS (10)
  - Idiopathic intracranial hypertension [None]
  - Vision blurred [None]
  - Dizziness [None]
  - Headache [None]
  - Migraine [None]
  - Nausea [None]
  - Ear pain [None]
  - Vomiting [None]
  - Tinnitus [None]
  - Eye pain [None]
